FAERS Safety Report 7804153-4 (Version None)
Quarter: 2011Q4

REPORT INFORMATION
  Report Type: 
  Country: None (occurrence: None)
  Receive Date: 20111010
  Receipt Date: 20110930
  Transmission Date: 20120403
  Serious: Yes (Other)
  Sender: FDA-Public Use
  Company Number: US-JNJFOC-20110910502

PATIENT
  Age: 21 Year
  Sex: Female

DRUGS (3)
  1. TOPIRAMATE [Suspect]
     Dosage: 100MG IN MORNING AND 150MG AT BED TIME
     Route: 048
  2. TOPIRAMATE [Suspect]
     Indication: MIGRAINE PROPHYLAXIS
     Dosage: DOSE DECREASED TO AN UNSPECIFIED DOSE
     Route: 048
     Dates: end: 20110206
  3. TOPIRAMATE [Suspect]
     Route: 048
     Dates: start: 20100501

REACTIONS (2)
  - DISSOCIATION [None]
  - DRUG INEFFECTIVE [None]
